FAERS Safety Report 12702014 (Version 1)
Quarter: 2016Q3

REPORT INFORMATION
  Report Type: Spontaneous
  Country: US (occurrence: US)
  Receive Date: 20160831
  Receipt Date: 20160831
  Transmission Date: 20161109
  Serious: No
  Sender: FDA-Public Use
  Company Number: US-BIOGEN-2016BI00282803

PATIENT
  Sex: Female

DRUGS (1)
  1. AVONEX [Suspect]
     Active Substance: INTERFERON BETA-1A
     Indication: MULTIPLE SCLEROSIS
     Route: 065
     Dates: start: 20160704

REACTIONS (8)
  - Fatigue [Unknown]
  - Decreased interest [Unknown]
  - Vomiting [Unknown]
  - Drug intolerance [Unknown]
  - Pain [Unknown]
  - Drug ineffective [Unknown]
  - Migraine [Unknown]
  - Bipolar disorder [Unknown]
